FAERS Safety Report 10247461 (Version 1)
Quarter: 2014Q2

REPORT INFORMATION
  Report Type: Spontaneous
  Country: GB (occurrence: GB)
  Receive Date: 20140619
  Receipt Date: 20140619
  Transmission Date: 20141212
  Serious: Yes (Hospitalization)
  Sender: FDA-Public Use
  Company Number: GB-BRISTOL-MYERS SQUIBB COMPANY-21010848

PATIENT
  Sex: Male

DRUGS (5)
  1. ABILIFY [Suspect]
     Indication: AGITATION
     Dosage: DOSE INCREASED: 10MG, 3TIMES/D
     Route: 048
  2. GABAPENTIN [Concomitant]
  3. MELATONIN [Concomitant]
  4. NUTRITIONAL SUPPLEMENT [Concomitant]
  5. PROBIOTICA [Concomitant]
     Dates: start: 20131005, end: 20131025

REACTIONS (10)
  - Chest pain [Recovering/Resolving]
  - Cold sweat [Unknown]
  - Glassy eyes [Recovering/Resolving]
  - Pallor [Recovering/Resolving]
  - Tremor [Unknown]
  - Skin discolouration [Recovering/Resolving]
  - Swelling face [Unknown]
  - Balance disorder [Recovering/Resolving]
  - Vomiting [Unknown]
  - Off label use [Unknown]
